FAERS Safety Report 9075184 (Version 1)
Quarter: 2013Q1

REPORT INFORMATION
  Report Type: Spontaneous
  Country: US (occurrence: US)
  Receive Date: 20130129
  Receipt Date: 20130129
  Transmission Date: 20140127
  Serious: Yes (Other)
  Sender: FDA-Public Use
  Company Number: US-AMGEN-USASP2010005151

PATIENT
  Age: 47 Year
  Sex: Female

DRUGS (2)
  1. PROCRIT [Suspect]
     Indication: RENAL FAILURE CHRONIC
     Dosage: 38000 IU, Q2WK
     Route: 058
  2. CORTICOSTEROIDS [Concomitant]

REACTIONS (1)
  - Corneal disorder [Unknown]
